FAERS Safety Report 15234172 (Version 1)
Quarter: 2018Q3

REPORT INFORMATION
  Report Type: Spontaneous
  Country: PT (occurrence: PT)
  Receive Date: 20180802
  Receipt Date: 20180802
  Transmission Date: 20181010
  Serious: Yes (Life-Threatening, Hospitalization)
  Sender: FDA-Public Use
  Company Number: PT-BAXTER-2018BAX020383

PATIENT
  Age: 74 Year
  Sex: Male

DRUGS (8)
  1. SPONGOSTAN [Suspect]
     Active Substance: GELATIN
     Indication: ANTRAL LAVAGE
     Route: 065
  2. CLORETO DE S?DIO 0,9% VIAFLO [Suspect]
     Active Substance: SODIUM CHLORIDE
     Indication: ANTRAL LAVAGE
     Route: 065
  3. CLORETO DE S?DIO 0,9% VIAFLO [Suspect]
     Active Substance: SODIUM CHLORIDE
     Indication: OFF LABEL USE
  4. PHENYLEPHRINE [Suspect]
     Active Substance: PHENYLEPHRINE\PHENYLEPHRINE HYDROCHLORIDE
     Indication: FLOODING
     Route: 065
  5. PHENYLEPHRINE [Suspect]
     Active Substance: PHENYLEPHRINE\PHENYLEPHRINE HYDROCHLORIDE
     Indication: HAEMORRHAGE
     Route: 042
  6. TRANEXAMIC ACID. [Suspect]
     Active Substance: TRANEXAMIC ACID
     Indication: HAEMORRHAGE
     Route: 042
  7. ADRENALIN [Suspect]
     Active Substance: EPINEPHRINE
     Indication: ANTRAL LAVAGE
     Route: 065
  8. TRANEXAMIC ACID. [Suspect]
     Active Substance: TRANEXAMIC ACID
     Indication: FLOODING
     Route: 065

REACTIONS (1)
  - Symptom recurrence [Recovering/Resolving]
